FAERS Safety Report 7948898-4 (Version None)
Quarter: 2011Q4

REPORT INFORMATION
  Report Type: 
  Country: None (occurrence: None)
  Receive Date: 20111130
  Receipt Date: 20111125
  Transmission Date: 20120403
  Serious: Yes (Death)
  Sender: FDA-Public Use
  Company Number: PHHY2011BR104117

PATIENT
  Sex: Female

DRUGS (3)
  1. HYDROCHLOROTHIAZIDE [Concomitant]
     Indication: FLUID RETENTION
  2. CAPTOPRIL [Concomitant]
     Indication: BLOOD PRESSURE
     Dosage: 2 DF (UNK), DAILY
     Route: 048
  3. DIOVAN [Suspect]
     Indication: FLUID RETENTION
     Dosage: 1 DF DAILY
     Route: 048

REACTIONS (1)
  - ANGINA PECTORIS [None]
